FAERS Safety Report 7066017-6 (Version None)
Quarter: 2010Q4

REPORT INFORMATION
  Report Type: 
  Country: None (occurrence: None)
  Receive Date: 20101027
  Receipt Date: 20100730
  Transmission Date: 20110411
  Serious: Yes (Other)
  Sender: FDA-Public Use
  Company Number: HQWYE234119JUL04

PATIENT
  Sex: Female
  Weight: 80.81 kg

DRUGS (2)
  1. PREMPRO [Suspect]
     Indication: HORMONE REPLACEMENT THERAPY
     Dosage: UNKNOWN
     Dates: start: 19981201
  2. PREMPRO [Suspect]
     Indication: MENOPAUSAL SYMPTOMS

REACTIONS (8)
  - BLOOD PRESSURE INCREASED [None]
  - DIZZINESS [None]
  - DYSPNOEA [None]
  - HOT FLUSH [None]
  - MUSCLE SPASMS [None]
  - PALPITATIONS [None]
  - PULMONARY EMBOLISM [None]
  - VAGINAL HAEMORRHAGE [None]
